FAERS Safety Report 9996642 (Version 2)
Quarter: 2014Q1

REPORT INFORMATION
  Report Type: Spontaneous
  Country: US (occurrence: US)
  Receive Date: 20140311
  Receipt Date: 20140313
  Transmission Date: 20141002
  Serious: Yes (Other)
  Sender: FDA-Public Use
  Company Number: US-TEVA-467667USA

PATIENT
  Age: 32 Year
  Sex: Female
  Weight: 64.92 kg

DRUGS (1)
  1. PARAGARD 380A [Suspect]
     Indication: CONTRACEPTION
     Route: 015
     Dates: start: 2008, end: 20140227

REACTIONS (8)
  - Abortion spontaneous [Recovered/Resolved]
  - Pregnancy with contraceptive device [Recovered/Resolved]
  - Drug ineffective [Recovered/Resolved]
  - Activities of daily living impaired [Unknown]
  - Nausea [Unknown]
  - Vomiting [Unknown]
  - Vaginal haemorrhage [Unknown]
  - Pain [Unknown]
